FAERS Safety Report 13368395 (Version 1)
Quarter: 2017Q1

REPORT INFORMATION
  Report Type: Spontaneous
  Country: US (occurrence: US)
  Receive Date: 20170324
  Receipt Date: 20170324
  Transmission Date: 20170429
  Serious: Yes (Other)
  Sender: FDA-Public Use
  Company Number: US-AMGEN-USASP2017041808

PATIENT
  Age: 70 Year
  Sex: Female
  Weight: 86.16 kg

DRUGS (4)
  1. BETAMETHASONE. [Concomitant]
     Active Substance: BETAMETHASONE
     Indication: PSORIASIS
     Dosage: UNK
  2. ENBREL [Suspect]
     Active Substance: ETANERCEPT
     Indication: PSORIATIC ARTHROPATHY
     Dosage: 50 MG, ONCE EVERY 10 DAYS
     Route: 065
     Dates: start: 2004
  3. ENBREL [Suspect]
     Active Substance: ETANERCEPT
     Indication: PSORIASIS
  4. VITAMIN D [Concomitant]
     Active Substance: CHOLECALCIFEROL
     Indication: PSORIASIS
     Dosage: UNK

REACTIONS (14)
  - Blood glucose abnormal [Unknown]
  - Paraesthesia [Not Recovered/Not Resolved]
  - Transient ischaemic attack [Unknown]
  - Intentional product misuse [Unknown]
  - Hypoaesthesia [Unknown]
  - Pain in extremity [Recovered/Resolved]
  - Osteopenia [Unknown]
  - Sluggishness [Unknown]
  - Feeling hot [Unknown]
  - Activities of daily living impaired [Unknown]
  - Weight increased [Unknown]
  - Arthralgia [Unknown]
  - Protein total abnormal [Unknown]
  - Blood pressure increased [Unknown]

NARRATIVE: CASE EVENT DATE: 2004
